FAERS Safety Report 10546653 (Version 2)
Quarter: 2017Q1

REPORT INFORMATION
  Report Type: Spontaneous
  Country: US (occurrence: US)
  Receive Date: 20141027
  Receipt Date: 20170111
  Transmission Date: 20170428
  Serious: Yes (Hospitalization)
  Sender: FDA-Public Use
  Company Number: US-GILEAD-2014-0119182

PATIENT
  Sex: Female

DRUGS (17)
  1. RANOLAZINE [Interacting]
     Active Substance: RANOLAZINE
     Dosage: 50 MG/KG/DAY EVERY 6 HOURS
     Route: 065
     Dates: start: 201409, end: 2016
  2. RANOLAZINE [Interacting]
     Active Substance: RANOLAZINE
     Dosage: 4 MG/KG, BID
     Route: 065
  3. RANOLAZINE [Interacting]
     Active Substance: RANOLAZINE
     Dosage: 60 MG/KG/DAY
     Route: 065
  4. VERAPAMIL [Interacting]
     Active Substance: VERAPAMIL HYDROCHLORIDE
     Indication: ELECTROCARDIOGRAM QT PROLONGED
     Dosage: 4 MG/KG/DAY DIVIDED OVER EVERY 8 HOUS
     Route: 065
     Dates: start: 2015, end: 2015
  5. MAGNESIUM [Concomitant]
     Active Substance: MAGNESIUM
     Dosage: UNK
     Dates: start: 201409
  6. TOPIRAMATE. [Concomitant]
     Active Substance: TOPIRAMATE
  7. RANOLAZINE [Interacting]
     Active Substance: RANOLAZINE
     Dosage: 2 MG/KG, BID
     Route: 065
  8. PROPRANOLOL [Concomitant]
     Active Substance: PROPRANOLOL HYDROCHLORIDE
     Dosage: 3 MG/KG/DAY Q 6HOURS
     Dates: start: 201409
  9. ISOPROTERENOL                      /00006301/ [Concomitant]
     Active Substance: ISOPROTERENOL
     Dosage: UNK
     Dates: start: 201409
  10. MEXILETINE [Concomitant]
     Active Substance: MEXILETINE
     Dosage: 10 MG/KG,  Q 8 HOURS
  11. PHENYTOIN. [Concomitant]
     Active Substance: PHENYTOIN
     Dosage: 4 MG/KG, Q 8 HOURS
  12. DILTIAZEM. [Interacting]
     Active Substance: DILTIAZEM
     Indication: ELECTROCARDIOGRAM QT PROLONGED
     Dosage: UNK
     Route: 065
     Dates: start: 2015, end: 2016
  13. MEXILETINE [Concomitant]
     Active Substance: MEXILETINE
     Dosage: 30 MG/KG/DAY EVERY 8 HOURS
     Dates: start: 201409
  14. RANOLAZINE [Suspect]
     Active Substance: RANOLAZINE
     Indication: ELECTROCARDIOGRAM QT PROLONGED
     Dosage: 2-25 MG/KG/DAY EVERY 12 HOURS
     Route: 065
     Dates: start: 201409
  15. FLECAINIDE [Concomitant]
     Active Substance: FLECAINIDE
     Dosage: UNK
     Dates: start: 201409
  16. LEVETIRACETAM. [Concomitant]
     Active Substance: LEVETIRACETAM
  17. PROPRANOLOL [Concomitant]
     Active Substance: PROPRANOLOL HYDROCHLORIDE
     Dosage: 1 MG/KG,Q8 HOURS

REACTIONS (5)
  - Wrong technique in product usage process [Recovered/Resolved]
  - Arrhythmia [Recovered/Resolved]
  - Drug interaction [Recovered/Resolved]
  - Therapeutic response unexpected [Recovered/Resolved]
  - Off label use [Recovered/Resolved]

NARRATIVE: CASE EVENT DATE: 2015
